FAERS Safety Report 6896604-7 (Version None)
Quarter: 2010Q3

REPORT INFORMATION
  Report Type: 
  Country: None (occurrence: None)
  Receive Date: 20100802
  Receipt Date: 20070118
  Transmission Date: 20110219
  Serious: Yes (Disabling)
  Sender: FDA-Public Use
  Company Number: US-PFIZER INC-2006146873

PATIENT
  Sex: Female
  Weight: 99.8 kg

DRUGS (12)
  1. LYRICA [Suspect]
     Indication: PAIN IN EXTREMITY
     Route: 048
     Dates: start: 20061111, end: 20061114
  2. ULTRAM [Suspect]
  3. ANTIHYPERTENSIVES [Suspect]
     Indication: HYPERTENSION
  4. ATENOLOL [Concomitant]
  5. FOSAMAX [Concomitant]
  6. LOTREL [Concomitant]
  7. HYDROCHLOROTHIAZIDE [Concomitant]
  8. CYCLOBENZAPRINE [Concomitant]
  9. CALCIUM [Concomitant]
  10. NIACIN [Concomitant]
  11. GLUCOSAMINE [Concomitant]
  12. CHONDROITIN [Concomitant]

REACTIONS (2)
  - DIZZINESS [None]
  - NAUSEA [None]
